FAERS Safety Report 13139406 (Version 1)
Quarter: 2017Q1

REPORT INFORMATION
  Report Type: Spontaneous
  Country: ES (occurrence: ES)
  Receive Date: 20170123
  Receipt Date: 20170123
  Transmission Date: 20170428
  Serious: Yes (Hospitalization, Other)
  Sender: FDA-Public Use
  Company Number: ES-GLAXOSMITHKLINE-ES2017GSK008830

PATIENT
  Age: 35 Year
  Sex: Male

DRUGS (1)
  1. ACICLOVIR [Suspect]
     Active Substance: ACYCLOVIR
     Dosage: 500 MG, UNK

REACTIONS (4)
  - Drug ineffective [Unknown]
  - Anal ulcer [Recovered/Resolved]
  - Herpes simplex [Recovered/Resolved]
  - Drug resistance [Unknown]
